FAERS Safety Report 8955742 (Version 1)
Quarter: 2012Q4

REPORT INFORMATION
  Report Type: 
  Country: UY (occurrence: UY)
  Receive Date: 20121210
  Receipt Date: 20121210
  Transmission Date: 20130627
  Serious: Yes (Other)
  Sender: FDA-Public Use
  Company Number: UY-BAYER-2012-125317

PATIENT
  Age: 44 Year
  Sex: Female

DRUGS (3)
  1. QLAIRA [Suspect]
     Dosage: UNK
     Route: 048
  2. MIRENA [Suspect]
     Dosage: 20 mcg/24hr, CONT
     Route: 015
     Dates: start: 2008, end: 201207
  3. MIRENA [Suspect]
     Dosage: 20 mcg/24hr, CONT
     Route: 015
     Dates: start: 20121128

REACTIONS (5)
  - Breast pain [Not Recovered/Not Resolved]
  - Headache [Not Recovered/Not Resolved]
  - Genital haemorrhage [Not Recovered/Not Resolved]
  - Device dislocation [Recovered/Resolved]
  - Post procedural haemorrhage [Not Recovered/Not Resolved]
